FAERS Safety Report 18170950 (Version 1)
Quarter: 2020Q3

REPORT INFORMATION
  Report Type: Report from Study
  Country: GB (occurrence: GB)
  Receive Date: 20200819
  Receipt Date: 20200819
  Transmission Date: 20201103
  Serious: Yes (Other)
  Sender: FDA-Public Use
  Company Number: NVSC2020GB225566

PATIENT
  Sex: Female

DRUGS (1)
  1. ERELZI [Suspect]
     Active Substance: ETANERCEPT-SZZS
     Indication: RHEUMATOID ARTHRITIS
     Dosage: 50 MG, QW (FORMULATION: PRE FILLED PEN)
     Route: 058
     Dates: start: 20200124

REACTIONS (5)
  - Mobility decreased [Unknown]
  - Weight increased [Unknown]
  - Rheumatoid arthritis [Unknown]
  - Skin depigmentation [Unknown]
  - Pain [Unknown]
